FAERS Safety Report 20994281 (Version 1)
Quarter: 2022Q2

REPORT INFORMATION
  Report Type: Spontaneous
  Country: FR (occurrence: FR)
  Receive Date: 20220622
  Receipt Date: 20220622
  Transmission Date: 20220721
  Serious: Yes (Other)
  Sender: FDA-Public Use
  Company Number: FR-MYLANLABS-2022M1046864

PATIENT
  Age: 56 Year
  Sex: Female

DRUGS (1)
  1. URSODIOL [Suspect]
     Active Substance: URSODIOL
     Indication: Cholelithiasis
     Dosage: UNK
     Route: 065

REACTIONS (1)
  - Treatment failure [Unknown]
